FAERS Safety Report 4700532-2 (Version None)
Quarter: 2005Q2

REPORT INFORMATION
  Report Type: 
  Country: None (occurrence: None)
  Receive Date: 20050627
  Receipt Date: 20050627
  Transmission Date: 20051028
  Serious: Yes (Hospitalization)
  Sender: FDA-Public Use
  Company Number: None

PATIENT
  Age: 84 Year
  Sex: Male
  Weight: 73 kg

DRUGS (2)
  1. WARFARIN    5MG [Suspect]
     Indication: ATRIAL FIBRILLATION
     Dosage: 5MG  DAILY  ORAL
     Route: 048
     Dates: start: 20050526, end: 20050603
  2. WARFARIN    5MG [Suspect]
     Indication: PULMONARY EMBOLISM
     Dosage: 5MG  DAILY  ORAL
     Route: 048
     Dates: start: 20050526, end: 20050603

REACTIONS (1)
  - INTERNATIONAL NORMALISED RATIO INCREASED [None]
